FAERS Safety Report 12536468 (Version 2)
Quarter: 2016Q3

REPORT INFORMATION
  Report Type: Report from Study
  Country: US (occurrence: US)
  Receive Date: 20160707
  Receipt Date: 20160725
  Transmission Date: 20161109
  Serious: Yes (Hospitalization, Other)
  Sender: FDA-Public Use
  Company Number: US-GILEAD-2016-0222435

PATIENT
  Age: 81 Year
  Sex: Female
  Weight: 76 kg

DRUGS (16)
  1. INSULIN LISPRO [Concomitant]
     Active Substance: INSULIN LISPRO
  2. PANTOPRAZOLE [Concomitant]
     Active Substance: PANTOPRAZOLE SODIUM
  3. SERTRALINE [Concomitant]
     Active Substance: SERTRALINE HYDROCHLORIDE
  4. AMBRISENTAN [Suspect]
     Active Substance: AMBRISENTAN
     Indication: PULMONARY HYPERTENSION
     Dosage: 10 MG, QD
     Route: 048
  5. ALBUTEROL W/IPRATROPIUM [Concomitant]
     Active Substance: ALBUTEROL\IPRATROPIUM
  6. POLYVINYL ALCOHOL [Concomitant]
     Active Substance: POLYVINYL ALCOHOL
  7. DEXTROSE. [Concomitant]
     Active Substance: DEXTROSE
  8. TRAMADOL. [Concomitant]
     Active Substance: TRAMADOL
  9. LASIX [Concomitant]
     Active Substance: FUROSEMIDE
  10. SENNA                              /00142201/ [Concomitant]
     Active Substance: SENNA LEAF
  11. AMBRISENTAN [Suspect]
     Active Substance: AMBRISENTAN
     Indication: CONNECTIVE TISSUE DISORDER
  12. ADCIRCA [Concomitant]
     Active Substance: TADALAFIL
  13. FUROSEMIDE. [Concomitant]
     Active Substance: FUROSEMIDE
  14. HEPARIN [Concomitant]
     Active Substance: HEPARIN SODIUM
  15. PREDNISONE. [Concomitant]
     Active Substance: PREDNISONE
  16. GLUCAGON. [Concomitant]
     Active Substance: GLUCAGON

REACTIONS (2)
  - Acute respiratory failure [Unknown]
  - Dyspnoea [Recovered/Resolved]

NARRATIVE: CASE EVENT DATE: 20160614
